FAERS Safety Report 4869870-7 (Version None)
Quarter: 2005Q4

REPORT INFORMATION
  Report Type: 
  Country: None (occurrence: None)
  Receive Date: 20051230
  Receipt Date: 20020208
  Transmission Date: 20060501
  Serious: Yes (Hospitalization, Disabling, Other)
  Sender: FDA-Public Use
  Company Number: US-MERCK-0202USA01025

PATIENT
  Age: 47 Year
  Sex: Male
  Weight: 85 kg

DRUGS (8)
  1. ZOCOR [Suspect]
     Indication: HYPERCHOLESTEROLAEMIA
     Route: 048
     Dates: start: 20000803, end: 20010202
  2. ZOCOR [Suspect]
     Indication: HYPERLIPIDAEMIA
     Route: 048
     Dates: start: 20000803, end: 20010202
  3. ASPIRIN [Concomitant]
     Route: 048
     Dates: end: 20010202
  4. RESTORIL [Concomitant]
     Route: 065
     Dates: end: 20010202
  5. TOPROL-XL [Concomitant]
     Route: 065
     Dates: end: 20010202
  6. NAPROSYN [Concomitant]
     Route: 065
     Dates: end: 20010202
  7. GARLIC EXTRACT [Concomitant]
     Route: 065
     Dates: end: 20010202
  8. Z-PAK [Suspect]
     Route: 065
     Dates: start: 20001201

REACTIONS (31)
  - ARTHRALGIA [None]
  - CHEST PAIN [None]
  - DERMATITIS [None]
  - DIABETES MELLITUS NON-INSULIN-DEPENDENT [None]
  - DIARRHOEA [None]
  - DIZZINESS [None]
  - DYSPNOEA [None]
  - EMOTIONAL DISTRESS [None]
  - EYELID PTOSIS [None]
  - HEART VALVE INSUFFICIENCY [None]
  - HYPERTENSION [None]
  - HYPOAESTHESIA [None]
  - INFLUENZA LIKE ILLNESS [None]
  - LARYNGEAL CANCER [None]
  - MAJOR DEPRESSION [None]
  - MEMORY IMPAIRMENT [None]
  - MOOD SWINGS [None]
  - MUSCLE RUPTURE [None]
  - MYOSITIS [None]
  - NOCTURIA [None]
  - OESOPHAGEAL STENOSIS [None]
  - PENIS DISORDER [None]
  - POLYMYOSITIS [None]
  - RASH [None]
  - RECTAL HAEMORRHAGE [None]
  - SEBORRHOEIC KERATOSIS [None]
  - SUICIDAL IDEATION [None]
  - SWELLING FACE [None]
  - SYNCOPE [None]
  - TENDON INJURY [None]
  - UPPER RESPIRATORY TRACT INFECTION [None]
